FAERS Safety Report 8158608-6 (Version None)
Quarter: 2012Q1

REPORT INFORMATION
  Report Type: 
  Country: None (occurrence: None)
  Receive Date: 20120223
  Receipt Date: 20120214
  Transmission Date: 20120608
  Serious: Yes (Hospitalization, Other)
  Sender: FDA-Public Use
  Company Number: US-BAYER-2011-046178

PATIENT
  Age: 28 Year
  Sex: Female
  Weight: 116 kg

DRUGS (12)
  1. YASMIN [Suspect]
  2. VALTREX [Concomitant]
     Dosage: 1000 MG, UNK
     Dates: start: 20040915, end: 20070527
  3. YAZ [Suspect]
     Indication: PREMENSTRUAL SYNDROME
     Dosage: UNK
     Dates: start: 20060301, end: 20070701
  4. ZOLOFT [Concomitant]
     Dosage: UNK
     Dates: start: 20050811, end: 20100310
  5. YASMIN [Suspect]
     Indication: PREMENSTRUAL SYNDROME
     Dosage: UNK
     Dates: start: 20060301, end: 20070701
  6. NSAID'S [Concomitant]
     Dosage: UNK
     Dates: start: 20010101, end: 20111101
  7. NITROFURANTOINUM [Concomitant]
     Dosage: UNK
     Dates: start: 20061110
  8. YASMIN [Suspect]
     Indication: DYSMENORRHOEA
  9. YAZ [Suspect]
  10. NITROFURANTOINUM [Concomitant]
     Dosage: UNK
     Dates: start: 20090519
  11. NITROFURANTOINUM [Concomitant]
     Dosage: UNK
     Dates: start: 20070130
  12. LEVAQUIN [Concomitant]
     Dosage: UNK
     Dates: start: 20070101

REACTIONS (15)
  - PAIN [None]
  - DYSPNOEA [None]
  - NAUSEA [None]
  - CHEST PAIN [None]
  - HYPERHIDROSIS [None]
  - EMOTIONAL DISTRESS [None]
  - PAIN IN EXTREMITY [None]
  - PELVIC VENOUS THROMBOSIS [None]
  - CHOLECYSTITIS CHRONIC [None]
  - ANXIETY [None]
  - DEEP VEIN THROMBOSIS [None]
  - VOMITING [None]
  - CHOLELITHIASIS [None]
  - ANHEDONIA [None]
  - OEDEMA PERIPHERAL [None]
